FAERS Safety Report 8957733 (Version 2)
Quarter: 2013Q1

REPORT INFORMATION
  Report Type: Spontaneous
  Country: US (occurrence: US)
  Receive Date: 20121211
  Receipt Date: 20130121
  Transmission Date: 20140127
  Serious: No
  Sender: FDA-Public Use
  Company Number: US-PFIZER INC-2012305344

PATIENT
  Sex: Male

DRUGS (4)
  1. SUTENT [Suspect]
     Indication: GASTROINTESTINAL STROMAL TUMOUR
     Dosage: 50 MG, UNK
     Dates: start: 201211
  2. NADOLOL [Concomitant]
     Dosage: UNK
  3. TYLENOL 4 WITH CODEINE [Concomitant]
     Dosage: AS NEEDED
  4. MIRALAX [Concomitant]
     Indication: FAECES HARD
     Dosage: UNK

REACTIONS (6)
  - Fatigue [Unknown]
  - Hyperhidrosis [Unknown]
  - Nausea [Unknown]
  - Tongue disorder [Unknown]
  - Eating disorder [Unknown]
  - Oral candidiasis [Unknown]
